FAERS Safety Report 19748521 (Version 1)
Quarter: 2021Q3

REPORT INFORMATION
  Report Type: Spontaneous
  Country: US (occurrence: US)
  Receive Date: 20210825
  Receipt Date: 20210825
  Transmission Date: 20211014
  Serious: No
  Sender: FDA-Public Use
  Company Number: None

PATIENT
  Age: 30 Year
  Sex: Female
  Weight: 112.5 kg

DRUGS (1)
  1. BUPRENORPHINE/ NALOXONE [Suspect]
     Active Substance: BUPRENORPHINE\NALOXONE
     Indication: DRUG DEPENDENCE
     Dosage: ?          QUANTITY:120 TABLET(S);?
     Route: 060
     Dates: start: 20201020, end: 20201022

REACTIONS (4)
  - Chemical burn [None]
  - Product substitution issue [None]
  - Burn oral cavity [None]
  - Throat irritation [None]

NARRATIVE: CASE EVENT DATE: 20201020
